FAERS Safety Report 25190289 (Version 7)
Quarter: 2025Q2

REPORT INFORMATION
  Report Type: Spontaneous
  Country: US (occurrence: US)
  Receive Date: 20250411
  Receipt Date: 20250616
  Transmission Date: 20250717
  Serious: No
  Sender: CALLIDITAS THERAPEUTICS AB
  Company Number: US-Calliditas-2025CAL00927

PATIENT
  Age: 68 Year
  Sex: Male

DRUGS (16)
  1. TARPEYO [Suspect]
     Active Substance: BUDESONIDE
     Indication: IgA nephropathy
     Route: 048
     Dates: start: 20250227, end: 20250402
  2. TARPEYO [Suspect]
     Active Substance: BUDESONIDE
     Indication: IgA nephropathy
     Route: 048
     Dates: start: 20250403
  3. VITAMINS [Concomitant]
     Active Substance: VITAMINS
  4. EDARBI [Concomitant]
     Active Substance: AZILSARTAN KAMEDOXOMIL
  5. NEBIVOLOL [Concomitant]
     Active Substance: NEBIVOLOL
  6. GLIMEPIRIDE [Concomitant]
     Active Substance: GLIMEPIRIDE
  7. PREDNISONE [Suspect]
     Active Substance: PREDNISONE
  8. VITAMIN D NOS [Concomitant]
     Active Substance: CHOLECALCIFEROL\ERGOCALCIFEROL
  9. PROTONIX [Concomitant]
     Active Substance: PANTOPRAZOLE SODIUM
  10. LIPITOR [Concomitant]
     Active Substance: ATORVASTATIN CALCIUM
  11. PLAVIX [Concomitant]
     Active Substance: CLOPIDOGREL BISULFATE
  12. NIFEDIPINE [Concomitant]
     Active Substance: NIFEDIPINE
  13. ASPIRIN [Concomitant]
     Active Substance: ASPIRIN
  14. FLONASE [Concomitant]
     Active Substance: FLUTICASONE PROPIONATE
  15. HYDRALAZINE [Concomitant]
     Active Substance: HYDRALAZINE HYDROCHLORIDE
  16. SEMAGLUTIDE [Concomitant]
     Active Substance: SEMAGLUTIDE

REACTIONS (7)
  - Muscle spasms [Recovered/Resolved]
  - Insomnia [Not Recovered/Not Resolved]
  - Prescribed underdose [Not Recovered/Not Resolved]
  - Swelling face [Unknown]
  - Diarrhoea [Not Recovered/Not Resolved]
  - Joint stiffness [Unknown]
  - Joint swelling [Unknown]

NARRATIVE: CASE EVENT DATE: 20240403
